FAERS Safety Report 7088704-6 (Version None)
Quarter: 2010Q4

REPORT INFORMATION
  Report Type: 
  Country: None (occurrence: None)
  Receive Date: 20101108
  Receipt Date: 20101028
  Transmission Date: 20110411
  Serious: Yes (Hospitalization)
  Sender: FDA-Public Use
  Company Number: US-US-EMD SERONO, INC.-230558J09USA

PATIENT
  Sex: Female
  Weight: 44 kg

DRUGS (4)
  1. REBIF [Suspect]
     Indication: MULTIPLE SCLEROSIS
     Route: 058
     Dates: start: 20081217, end: 20090924
  2. LYRICA [Concomitant]
     Indication: TRIGEMINAL NEURALGIA
     Route: 065
     Dates: start: 20080703
  3. OMEPRAZOLE [Concomitant]
     Indication: FLATULENCE
     Route: 065
  4. ACIPHEX [Concomitant]
     Indication: GASTROOESOPHAGEAL REFLUX DISEASE
     Route: 048
     Dates: start: 20080721

REACTIONS (6)
  - ABDOMINAL PAIN UPPER [None]
  - ANXIETY [None]
  - DEPRESSION [None]
  - FATIGUE [None]
  - NAUSEA [None]
  - PNEUMONIA [None]
